FAERS Safety Report 5570383-8 (Version None)
Quarter: 2007Q4

REPORT INFORMATION
  Report Type: 
  Country: None (occurrence: None)
  Receive Date: 20071221
  Receipt Date: 20071217
  Transmission Date: 20080405
  Serious: Yes (Hospitalization)
  Sender: FDA-Public Use
  Company Number: US-WYE-H01807507

PATIENT
  Age: 79 Year
  Sex: Female
  Weight: 74 kg

DRUGS (1)
  1. PREMARIN [Suspect]
     Indication: HORMONE REPLACEMENT THERAPY
     Route: 067
     Dates: start: 19670101

REACTIONS (2)
  - CYSTITIS [None]
  - UROSEPSIS [None]
